FAERS Safety Report 7713673-2 (Version None)
Quarter: 2011Q3

REPORT INFORMATION
  Report Type: 
  Country: None (occurrence: None)
  Receive Date: 20110826
  Receipt Date: 20110824
  Transmission Date: 20111222
  Serious: Yes (Death)
  Sender: FDA-Public Use
  Company Number: PHHY2011ZA75220

PATIENT
  Age: 54 Year
  Sex: Female

DRUGS (3)
  1. HALOPERIDOL [Suspect]
     Indication: PSYCHOTIC DISORDER
     Route: 048
  2. ATIVAN [Concomitant]
     Dosage: 5 MG/DAY
  3. CLOPIXOL ACUPHASE [Concomitant]

REACTIONS (2)
  - DEATH [None]
  - TACHYCARDIA [None]
